FAERS Safety Report 9324915 (Version 1)
Quarter: 2013Q2

REPORT INFORMATION
  Report Type: Spontaneous
  Country: JP (occurrence: JP)
  Receive Date: 20130603
  Receipt Date: 20130603
  Transmission Date: 20140414
  Serious: Yes (Hospitalization)
  Sender: FDA-Public Use
  Company Number: PHHY2013JP052332

PATIENT
  Age: 49 Year
  Sex: Female

DRUGS (5)
  1. CICLOSPORIN [Suspect]
     Indication: PEMPHIGUS
     Dosage: 200 MG, DAY
     Route: 048
  2. METHYLPREDNISOLONE [Suspect]
     Indication: PEMPHIGUS
     Dosage: 1000 MG, PER DAY
  3. BETAMETHASONE [Suspect]
     Indication: PEMPHIGUS
     Dosage: 2 MG, UNK
  4. DIAPHENYLSULFON [Concomitant]
     Indication: PEMPHIGUS
     Dosage: 75 MG, PER DAY
  5. IMMUNOGLOBULINS [Concomitant]
     Indication: PEMPHIGUS

REACTIONS (20)
  - Hepatic function abnormal [Recovering/Resolving]
  - Pseudomonas infection [Recovering/Resolving]
  - Staphylococcal infection [Recovering/Resolving]
  - Candida infection [Recovering/Resolving]
  - Bacteraemia [Recovering/Resolving]
  - Cytomegalovirus infection [Recovering/Resolving]
  - Catheter site infection [Unknown]
  - Hepatitis B [Recovered/Resolved]
  - Pemphigus [Recovering/Resolving]
  - Oral mucosal eruption [Unknown]
  - Oral mucosa erosion [Unknown]
  - Mouth ulceration [Unknown]
  - Sepsis [Unknown]
  - Blister [Recovering/Resolving]
  - Rash [Unknown]
  - Pyrexia [Unknown]
  - Skin ulcer [Unknown]
  - Haemorrhage [Unknown]
  - Breath odour [Unknown]
  - Drug ineffective [Recovering/Resolving]
